FAERS Safety Report 9812600 (Version 1)
Quarter: 2014Q1

REPORT INFORMATION
  Report Type: Spontaneous
  Country: US (occurrence: US)
  Receive Date: 20140113
  Receipt Date: 20140113
  Transmission Date: 20141002
  Serious: Yes (Death)
  Sender: FDA-Public Use
  Company Number: US-ASTRAZENECA-2014SE02258

PATIENT
  Age: 69 Year
  Sex: Male

DRUGS (9)
  1. ESOMEPRAZOLE [Suspect]
     Route: 048
  2. PAROXETINE [Suspect]
     Route: 065
  3. AMLODIPINE [Suspect]
     Route: 065
  4. LITHIUM [Suspect]
     Route: 065
  5. INSULIN [Suspect]
     Route: 065
  6. HYDROCHLOROTHIAZIDE (+) LISINOPRIL [Suspect]
     Route: 065
  7. FOSINOPRIL [Suspect]
     Route: 065
  8. DULOXETINE [Suspect]
     Route: 065
  9. ATORVASTATIN [Suspect]
     Route: 065

REACTIONS (2)
  - Toxicity to various agents [Fatal]
  - Completed suicide [Fatal]
